FAERS Safety Report 22951834 (Version 4)
Quarter: 2023Q4

REPORT INFORMATION
  Report Type: Spontaneous
  Country: JP (occurrence: JP)
  Receive Date: 20230918
  Receipt Date: 20231226
  Transmission Date: 20240110
  Serious: Yes (Other)
  Sender: FDA-Public Use
  Company Number: JP-MSD-2309JPN001598J

PATIENT
  Age: 78 Year
  Sex: Male

DRUGS (3)
  1. KEYTRUDA [Suspect]
     Active Substance: PEMBROLIZUMAB
     Indication: Renal cell carcinoma recurrent
     Dosage: 200 MILLIGRAM
     Route: 041
     Dates: start: 202307
  2. LENVATINIB MESYLATE [Suspect]
     Active Substance: LENVATINIB MESYLATE
     Indication: Renal cell carcinoma recurrent
     Dosage: 14 MILLIGRAM
     Route: 048
     Dates: start: 202307, end: 2023
  3. LENVATINIB MESYLATE [Suspect]
     Active Substance: LENVATINIB MESYLATE
     Dosage: 10 MILLIGRAM
     Route: 048
     Dates: start: 202308

REACTIONS (2)
  - Tumour lysis syndrome [Unknown]
  - Tumour haemorrhage [Recovered/Resolved]

NARRATIVE: CASE EVENT DATE: 20230701
